FAERS Safety Report 10427910 (Version 1)
Quarter: 2014Q3

REPORT INFORMATION
  Report Type: Spontaneous
  Country: US (occurrence: None)
  Receive Date: 20140902
  Receipt Date: 20140902
  Transmission Date: 20150326
  Serious: No
  Sender: FDA-Public Use
  Company Number: None

PATIENT
  Age: 43 Year
  Sex: Female
  Weight: 83.01 kg

DRUGS (1)
  1. LYRICA [Suspect]
     Active Substance: PREGABALIN
     Indication: FIBROMYALGIA
     Dosage: 1 PILL  AT BEDTIME  --
     Dates: start: 20131113, end: 20140531

REACTIONS (2)
  - Expiratory reserve volume abnormal [None]
  - Memory impairment [None]

NARRATIVE: CASE EVENT DATE: 20140228
